FAERS Safety Report 9219012 (Version 1)
Quarter: 2013Q2

REPORT INFORMATION
  Report Type: Spontaneous
  Country: FR (occurrence: FR)
  Receive Date: 20130409
  Receipt Date: 20130409
  Transmission Date: 20140414
  Serious: Yes (Other)
  Sender: FDA-Public Use
  Company Number: FR-PFIZER INC-2013110339

PATIENT
  Age: 77 Year
  Sex: Female

DRUGS (4)
  1. CORDARONE [Suspect]
     Indication: SINUS ARRHYTHMIA
     Dosage: UNK
     Route: 048
     Dates: start: 20120209, end: 20121221
  2. PREVISCAN [Concomitant]
     Dosage: UNK
  3. CRESTOR [Concomitant]
     Dosage: UNK
  4. COVERSYL [Concomitant]
     Dosage: UNK

REACTIONS (2)
  - Papilloedema [Recovering/Resolving]
  - Intraocular pressure increased [Unknown]
